FAERS Safety Report 5493273-8 (Version None)
Quarter: 2007Q4

REPORT INFORMATION
  Report Type: 
  Country: None (occurrence: None)
  Receive Date: 20071022
  Receipt Date: 20071022
  Transmission Date: 20080405
  Serious: Yes (Other)
  Sender: FDA-Public Use
  Company Number: None

PATIENT
  Age: 59 Year
  Sex: Female
  Weight: 91.173 kg

DRUGS (12)
  1. PHOSPHOSODA UNFLAVORED [Suspect]
     Dosage: 45 ML X1 PO
     Route: 048
     Dates: start: 20071010, end: 20071010
  2. MOBIC [Concomitant]
  3. ASPIRIN [Concomitant]
  4. HYDROCHLOROTHIAZIDE [Concomitant]
  5. METFORMIN [Concomitant]
  6. EZETIMIBE [Concomitant]
  7. METOPROLOL [Concomitant]
  8. SYNTHROID [Concomitant]
  9. LISINOPRIL [Concomitant]
  10. NORVASC [Concomitant]
  11. B-12 LATINO DEPOT [Concomitant]
  12. EPIPEN [Concomitant]

REACTIONS (2)
  - BLOOD POTASSIUM DECREASED [None]
  - VOMITING [None]
